FAERS Safety Report 8194959-7 (Version None)
Quarter: 2012Q1

REPORT INFORMATION
  Report Type: 
  Country: None (occurrence: None)
  Receive Date: 20120308
  Receipt Date: 20110728
  Transmission Date: 20120608
  Serious: No
  Sender: FDA-Public Use
  Company Number: US-GLAXOSMITHKLINE-A0938736A

PATIENT
  Age: 47 Year
  Sex: Female

DRUGS (1)
  1. NICORETTE (MINT) [Suspect]
     Indication: EX-TOBACCO USER
     Dates: start: 20110713, end: 20110726

REACTIONS (4)
  - GINGIVAL SWELLING [None]
  - HYPERSENSITIVITY [None]
  - GINGIVAL PAIN [None]
  - PAIN [None]
